FAERS Safety Report 8749191 (Version 2)
Quarter: 2012Q4

REPORT INFORMATION
  Report Type: Spontaneous
  Country: US (occurrence: None)
  Receive Date: 20120802
  Receipt Date: 20121101
  Transmission Date: 20130627
  Serious: Yes (Other)
  Sender: FDA-Public Use
  Company Number: A0979311A

PATIENT
  Age: 30 Year
  Sex: Female
  Weight: 63.46 kg

DRUGS (7)
  1. CALCIUM CARBONATE [Suspect]
     Indication: DYSPEPSIA
     Dosage: TRANSPLACENTAL
     Route: 064
  2. ALBUTEROL SULFATE [Concomitant]
  3. BUDESONIDE [Concomitant]
  4. PREDNISONE [Concomitant]
  5. AZITHROMYCIN [Concomitant]
  6. MONTELUKAST SODIUM [Concomitant]
  7. VITAMINS NOS [Concomitant]

REACTIONS (8)
  - Pregnancy [None]
  - Maternal exposure during pregnancy [None]
  - Product quality issue [None]
  - Product contamination physical [None]
  - Incorrect dose administered [None]
  - Asthma [None]
  - Product container seal issue [None]
  - Drug administration error [None]
